FAERS Safety Report 13888577 (Version 1)
Quarter: 2017Q3

REPORT INFORMATION
  Report Type: Spontaneous
  Country: DK (occurrence: DK)
  Receive Date: 20170821
  Receipt Date: 20170821
  Transmission Date: 20171127
  Serious: Yes (Other)
  Sender: FDA-Public Use
  Company Number: DK-TAKEDA-2017TUS013384

PATIENT
  Sex: Female

DRUGS (1)
  1. BRINTELLIX [Suspect]
     Active Substance: VORTIOXETINE HYDROBROMIDE
     Indication: DEPRESSION
     Dosage: 10 MG, UNK
     Route: 065

REACTIONS (22)
  - Libido decreased [Unknown]
  - Wrong technique in product usage process [Unknown]
  - Therapeutic response unexpected [Not Recovered/Not Resolved]
  - Drug intolerance [Unknown]
  - Headache [Unknown]
  - Night sweats [Unknown]
  - Insomnia [Recovering/Resolving]
  - Hyperhidrosis [Unknown]
  - Vomiting [Recovered/Resolved]
  - Dizziness [Unknown]
  - Abnormal dreams [Unknown]
  - Suicidal ideation [Unknown]
  - Abdominal pain [Unknown]
  - Sinus tachycardia [Unknown]
  - Drug ineffective [Unknown]
  - Constipation [Unknown]
  - Fatigue [Unknown]
  - Gastrointestinal disorder [Unknown]
  - Nausea [Recovering/Resolving]
  - Contusion [Unknown]
  - Heart rate abnormal [Unknown]
  - Motion sickness [Unknown]
